FAERS Safety Report 17601158 (Version 2)
Quarter: 2020Q1

REPORT INFORMATION
  Report Type: Spontaneous
  Country: HR (occurrence: HR)
  Receive Date: 20200330
  Receipt Date: 20200331
  Transmission Date: 20200409
  Serious: Yes (Death, Life-Threatening, Disabling, Other)
  Sender: FDA-Public Use
  Company Number: HR-CELGENEUS-HRV-20200309503

PATIENT
  Age: 40 Year
  Sex: Female

DRUGS (31)
  1. DOXIL [Concomitant]
     Active Substance: DOXORUBICIN HYDROCHLORIDE
     Indication: PRODUCT USED FOR UNKNOWN INDICATION
     Dosage: THREE CYCLES (R-CHEVP PROTOCOL)
     Route: 042
  2. METHYLPREDNISOLONE. [Concomitant]
     Active Substance: METHYLPREDNISOLONE
     Dosage: (R-CHEVP PROTOCOL)
     Route: 065
  3. CURASEPT [Concomitant]
     Indication: ANTIBIOTIC PROPHYLAXIS
     Dosage: MOUTHWASH THREE TIMES A DAY
     Route: 065
  4. GELCLAIR [Concomitant]
     Indication: PRODUCT USED FOR UNKNOWN INDICATION
     Dosage: DOSE NOT PROVIDED
     Route: 065
  5. TRITACE [Concomitant]
     Active Substance: RAMIPRIL
     Indication: PRODUCT USED FOR UNKNOWN INDICATION
     Dosage: DOSE NOT PROVIDED
     Route: 065
  6. METHYLDIGOXIN [Concomitant]
     Active Substance: METILDIGOXIN
     Indication: PRODUCT USED FOR UNKNOWN INDICATION
     Dosage: DOSE NOT PROVIDED
     Route: 065
  7. DIFLAMM [Concomitant]
     Indication: PRODUCT USED FOR UNKNOWN INDICATION
     Dosage: DOSE NOT PROVIDED
     Route: 065
  8. DIFLUCAN [Concomitant]
     Active Substance: FLUCONAZOLE
     Indication: PRODUCT USED FOR UNKNOWN INDICATION
     Dosage: DOSE NOT PROVIDED
     Route: 065
  9. ACYCLOVIR. [Concomitant]
     Active Substance: ACYCLOVIR
     Indication: ANTIBIOTIC PROPHYLAXIS
     Dosage: DOSE NOT PROVIDED
     Route: 065
  10. ETOPOSIDE. [Concomitant]
     Active Substance: ETOPOSIDE
     Dosage: FIVE CYCLES (R-CHOEP PROTOCOL) AND THREE CYCLES (R-CHEVP PROTOCOL)
     Route: 065
  11. VINBLASTIN [Concomitant]
     Active Substance: VINBLASTINE
     Indication: DIFFUSE LARGE B-CELL LYMPHOMA STAGE IV
     Dosage: (R-CHEVP PROTOCOL)
     Route: 065
  12. CONTROLOC [Concomitant]
     Active Substance: PANTOPRAZOLE SODIUM
     Indication: PRODUCT USED FOR UNKNOWN INDICATION
     Dosage: DOSE NOT PROVIDED
     Route: 065
  13. METHYLPREDNISOLONE. [Concomitant]
     Active Substance: METHYLPREDNISOLONE
     Indication: DIFFUSE LARGE B-CELL LYMPHOMA STAGE IV
     Dosage: FIVE CYCLES (R-CHOEP PROTOCOL) AND THREE CYCLES (R-CHEVP PROTOCOL)
     Route: 065
  14. ETOPOSIDE. [Concomitant]
     Active Substance: ETOPOSIDE
     Indication: DIFFUSE LARGE B-CELL LYMPHOMA STAGE IV
     Dosage: (R-CHEVP PROTOCOL)
     Route: 065
  15. CYCLOPHOSPHAMIDE. [Concomitant]
     Active Substance: CYCLOPHOSPHAMIDE
     Indication: DIFFUSE LARGE B-CELL LYMPHOMA STAGE IV
     Dosage: FIVE CYCLES (R-CHOEP PROTOCOL) AND THREE CYCLES (R-CHEVP PROTOCOL)
     Route: 065
  16. VINCRISTINE SULFATE. [Concomitant]
     Active Substance: VINCRISTINE SULFATE
     Indication: DIFFUSE LARGE B-CELL LYMPHOMA STAGE IV
     Dosage: FIVE CYCLES (R-CHOEP PROTOCOL)
     Route: 065
  17. RITUXIMAB. [Concomitant]
     Active Substance: RITUXIMAB
     Dosage: FIVE CYCLES (R-CHOEP PROTOCOL) AND THREE CYCLES (R-CHEVP PROTOCOL)
     Route: 065
  18. ENDOXAN [Concomitant]
     Active Substance: CYCLOPHOSPHAMIDE
     Indication: PRODUCT USED FOR UNKNOWN INDICATION
     Dosage: (R-CHEVP PROTOCOL)
     Route: 065
  19. FLUCONAZOLE. [Concomitant]
     Active Substance: FLUCONAZOLE
     Indication: ANTIBIOTIC PROPHYLAXIS
     Dosage: (R-CHEVP PROTOCOL)
     Route: 065
  20. DOXORUBICIN HCL [Concomitant]
     Active Substance: DOXORUBICIN HYDROCHLORIDE
     Indication: DIFFUSE LARGE B-CELL LYMPHOMA STAGE IV
     Dosage: FIVE CYCLES (R-CHOEP PROTOCOL) AND THREE CYCLES (R-CHEVP PROTOCOL)
     Route: 065
  21. CIPROFLOXACIN. [Concomitant]
     Active Substance: CIPROFLOXACIN
     Dosage: ( R-CHOEP PROTOCOL)
     Route: 065
  22. AZACITIDINE. [Suspect]
     Active Substance: AZACITIDINE
     Indication: ACUTE MYELOID LEUKAEMIA
     Dosage: DOSE NOT PROVIDED
     Route: 065
  23. RITUXIMAB. [Concomitant]
     Active Substance: RITUXIMAB
     Indication: DIFFUSE LARGE B-CELL LYMPHOMA STAGE IV
     Dosage: (R-CHEVP PROTOCOL)
     Route: 065
  24. RITUXIMAB. [Concomitant]
     Active Substance: RITUXIMAB
     Dosage: (R-CHOEP PROTOCOL)
     Route: 065
  25. CIPROFLOXACIN. [Concomitant]
     Active Substance: CIPROFLOXACIN
     Indication: ANTIBIOTIC PROPHYLAXIS
     Dosage: (R-CHEVP PROTOCOL)
     Route: 065
  26. FUROSEMIDE. [Concomitant]
     Active Substance: FUROSEMIDE
     Indication: PRODUCT USED FOR UNKNOWN INDICATION
     Dosage: DOSE NOT PROVIDED
     Route: 065
  27. BETAMETHASONE. [Concomitant]
     Active Substance: BETAMETHASONE
     Indication: PRODUCT USED FOR UNKNOWN INDICATION
     Dosage: DOSE NOT PROVIDED
     Route: 065
  28. CARVELOL [Concomitant]
     Active Substance: CARVEDILOL
     Indication: PRODUCT USED FOR UNKNOWN INDICATION
     Dosage: DOSE NOT PROVIDED
     Route: 065
  29. THIOGUANINE [Concomitant]
     Active Substance: THIOGUANINE
     Indication: REFRACTORY ANAEMIA WITH AN EXCESS OF BLASTS
     Dosage: FIVE CYCLES (R-CHOEP PROTOCOL) AND THREE CYCLES (R-CHEVP PROTOCOL)
     Route: 065
  30. ALDACTONE [Concomitant]
     Active Substance: SPIRONOLACTONE
     Indication: PRODUCT USED FOR UNKNOWN INDICATION
     Dosage: DOSE NOT PROVIDED
     Route: 065
  31. DOLOKAIN [Concomitant]
     Indication: PRODUCT USED FOR UNKNOWN INDICATION
     Dosage: DOSE NOT PROVIDED
     Route: 065

REACTIONS (11)
  - Leukaemia [Unknown]
  - Thrombocytopenia [Unknown]
  - Staphylococcal sepsis [Fatal]
  - Pancytopenia [Unknown]
  - Refractory anaemia with an excess of blasts [Unknown]
  - Congestive cardiomyopathy [Unknown]
  - Mouth ulceration [Unknown]
  - Neutropenia [Unknown]
  - Aspergillus infection [Fatal]
  - Acute myeloid leukaemia [Unknown]
  - Toxic neuropathy [Unknown]
